FAERS Safety Report 14229570 (Version 2)
Quarter: 2017Q4

REPORT INFORMATION
  Report Type: Spontaneous
  Country: US (occurrence: US)
  Receive Date: 20171128
  Receipt Date: 20171130
  Transmission Date: 20180321
  Serious: Yes (Other)
  Sender: FDA-Public Use
  Company Number: US-LUNDBECK-DKLU2040020

PATIENT
  Sex: Female

DRUGS (3)
  1. NORTHERA [Suspect]
     Active Substance: DROXIDOPA
     Indication: PRODUCT USED FOR UNKNOWN INDICATION
     Dosage: SCHEDULE A
     Route: 065
  2. NORTHERA [Suspect]
     Active Substance: DROXIDOPA
     Route: 065
  3. NORTHERA [Suspect]
     Active Substance: DROXIDOPA
     Route: 065

REACTIONS (7)
  - Impaired gastric emptying [Recovering/Resolving]
  - Nausea [Recovering/Resolving]
  - Irritable bowel syndrome [Recovering/Resolving]
  - Abdominal pain upper [Recovering/Resolving]
  - Nasopharyngitis [Unknown]
  - Headache [Unknown]
  - Incorrect drug administration duration [Unknown]
